FAERS Safety Report 17481225 (Version 5)
Quarter: 2020Q4

REPORT INFORMATION
  Report Type: Report from Study
  Country: US (occurrence: US)
  Receive Date: 20200302
  Receipt Date: 20201022
  Transmission Date: 20210113
  Serious: Yes (Other)
  Sender: FDA-Public Use
  Company Number: NVSC2020US057343

PATIENT
  Age: 74 Year
  Sex: Female

DRUGS (2)
  1. BEOVU [Suspect]
     Active Substance: BROLUCIZUMAB-DBLL
     Dosage: UNK
     Route: 047
     Dates: start: 20200508
  2. BEOVU [Suspect]
     Active Substance: BROLUCIZUMAB-DBLL
     Indication: NEOVASCULAR AGE-RELATED MACULAR DEGENERATION
     Dosage: 6 MG, LEFT EYE
     Route: 047
     Dates: start: 20191120

REACTIONS (4)
  - Cataract [Unknown]
  - Eye disorder [Unknown]
  - Eye pruritus [Unknown]
  - Anxiety [Unknown]

NARRATIVE: CASE EVENT DATE: 20191120
